FAERS Safety Report 6826535-X (Version None)
Quarter: 2010Q3

REPORT INFORMATION
  Report Type: 
  Country: None (occurrence: None)
  Receive Date: 20100709
  Receipt Date: 20100701
  Transmission Date: 20110219
  Serious: Yes (Hospitalization)
  Sender: FDA-Public Use
  Company Number: PHHO2009IT12580

PATIENT
  Sex: Male
  Weight: 72 kg

DRUGS (1)
  1. CERTICAN [Suspect]
     Indication: RENAL TRANSPLANT
     Dosage: 1.75 MG DAILY DOSE
     Route: 048
     Dates: start: 20090921

REACTIONS (2)
  - RENAL IMPAIRMENT [None]
  - TRANSPLANT REJECTION [None]
